FAERS Safety Report 15195272 (Version 1)
Quarter: 2018Q3

REPORT INFORMATION
  Report Type: Spontaneous
  Country: US (occurrence: US)
  Receive Date: 20180725
  Receipt Date: 20180725
  Transmission Date: 20181010
  Serious: Yes (Disabling, Other)
  Sender: FDA-Public Use
  Company Number: US-AMGEN-USASP2018099861

PATIENT
  Age: 73 Year
  Sex: Female

DRUGS (1)
  1. PROLIA [Suspect]
     Active Substance: DENOSUMAB
     Indication: OSTEOPOROSIS POSTMENOPAUSAL
     Dosage: 60 MG, Q6MO
     Route: 065

REACTIONS (6)
  - Device dislocation [Unknown]
  - Fall [Unknown]
  - Tooth extraction [Unknown]
  - Atrophy [Unknown]
  - Post procedural infection [Recovered/Resolved]
  - Nerve root injury [Unknown]

NARRATIVE: CASE EVENT DATE: 2018
